FAERS Safety Report 6046104-1 (Version None)
Quarter: 2009Q1

REPORT INFORMATION
  Report Type: 
  Country: None (occurrence: None)
  Receive Date: 20090121
  Receipt Date: 20090121
  Transmission Date: 20090719
  Serious: No
  Sender: FDA-Public Use
  Company Number: None

PATIENT
  Sex: Male
  Weight: 36.2878 kg

DRUGS (1)
  1. OXCARBAZEPINE [Suspect]
     Dosage: 600 MG VARIABLE AT 7 AM AND 2 PM - 1 1/2 @ 8 PM

REACTIONS (4)
  - ABNORMAL BEHAVIOUR [None]
  - INSOMNIA [None]
  - INTENTIONAL SELF-INJURY [None]
  - PRODUCT QUALITY ISSUE [None]
